FAERS Safety Report 9967290 (Version 2)
Quarter: 2014Q1

REPORT INFORMATION
  Report Type: Report from Study
  Country: US (occurrence: US)
  Receive Date: 20140305
  Receipt Date: 20140305
  Transmission Date: 20141002
  Serious: No
  Sender: FDA-Public Use
  Company Number: US-ABBVIE-13P-163-1122772-00

PATIENT
  Age: 27 Year
  Sex: Female
  Weight: 87.62 kg

DRUGS (12)
  1. HUMIRA [Suspect]
     Indication: CROHN^S DISEASE
     Dates: start: 20130711, end: 20130711
  2. HUMIRA [Suspect]
     Route: 058
     Dates: start: 20130725
  3. PENTASA [Concomitant]
     Indication: CROHN^S DISEASE
  4. FOLIC ACID [Concomitant]
     Indication: VITAMIN SUPPLEMENTATION
  5. PRILOSEC [Concomitant]
     Indication: GASTRIC ULCER
     Dosage: BEFORE EATING
  6. FIBER SUPPLEMENT [Concomitant]
     Indication: CROHN^S DISEASE
  7. ENDOCET [Concomitant]
     Indication: ABDOMINAL PAIN UPPER
  8. ENDOCET [Concomitant]
     Indication: MUSCLE SPASMS
  9. UNNAMED MEDICATION [Concomitant]
     Indication: CONTRACEPTION
  10. MULTIVITAMIN [Concomitant]
     Indication: VITAMIN SUPPLEMENTATION
  11. VITAMIN B12 [Concomitant]
     Indication: PRODUCT USED FOR UNKNOWN INDICATION
  12. UNKNOWN BIRTH CONTROL [Concomitant]
     Indication: CONTRACEPTION

REACTIONS (4)
  - Injection site pain [Not Recovered/Not Resolved]
  - Diarrhoea [Not Recovered/Not Resolved]
  - Abdominal pain [Not Recovered/Not Resolved]
  - Anxiety [Recovered/Resolved]
